FAERS Safety Report 20491247 (Version 2)
Quarter: 2022Q1

REPORT INFORMATION
  Report Type: Report from Study
  Country: SG (occurrence: SG)
  Receive Date: 20220218
  Receipt Date: 20220222
  Transmission Date: 20220424
  Serious: Yes (Hospitalization)
  Sender: FDA-Public Use
  Company Number: SG-NOVARTISPH-NVSC2022SG033293

PATIENT
  Age: 66 Year
  Sex: Female
  Weight: 52.5 kg

DRUGS (2)
  1. ALPELISIB [Suspect]
     Active Substance: ALPELISIB
     Indication: Ovarian cancer
     Dosage: 200 MG, QD, DAILY
     Route: 048
     Dates: start: 20220126, end: 20220210
  2. OLAPARIB [Suspect]
     Active Substance: OLAPARIB
     Indication: Ovarian cancer
     Dosage: 400 MG_BID_(2 TIMES PER DAY)
     Route: 048
     Dates: start: 20220126

REACTIONS (1)
  - Aphasia [Not Recovered/Not Resolved]

NARRATIVE: CASE EVENT DATE: 20220201
